FAERS Safety Report 11319706 (Version 1)
Quarter: 2015Q3

REPORT INFORMATION
  Report Type: Spontaneous
  Country: US (occurrence: None)
  Receive Date: 20150728
  Receipt Date: 20150728
  Transmission Date: 20151125
  Serious: No
  Sender: FDA-Public Use
  Company Number: None

PATIENT
  Age: 59 Year
  Sex: Female
  Weight: 52.62 kg

DRUGS (13)
  1. AMLODIPINE BESILATE [Concomitant]
     Active Substance: AMLODIPINE BESYLATE
  2. NITRO [Concomitant]
     Active Substance: NITROGLYCERIN
  3. B12 INJECTIONS [Concomitant]
  4. LEVOTHYROXINE. [Concomitant]
     Active Substance: LEVOTHYROXINE
  5. VITAMIN D3 [Concomitant]
     Active Substance: CHOLECALCIFEROL
  6. METAMUCIL [Concomitant]
     Active Substance: PLANTAGO SEED
  7. COQ10 [Concomitant]
     Active Substance: UBIDECARENONE
  8. GABAPENTIN. [Concomitant]
     Active Substance: GABAPENTIN
  9. ALPRAZOLAM. [Concomitant]
     Active Substance: ALPRAZOLAM
  10. LIDOCAINE CREAM [Concomitant]
  11. CIPROFLOXACIN. [Suspect]
     Active Substance: CIPROFLOXACIN
     Indication: DIVERTICULITIS
     Route: 048
  12. FLAGYL [Suspect]
     Active Substance: METRONIDAZOLE\METRONIDAZOLE HYDROCHLORIDE
     Indication: NEURALGIA
     Route: 042
     Dates: start: 20150114, end: 20150118
  13. BABY ASPIRIN [Concomitant]
     Active Substance: ASPIRIN

REACTIONS (6)
  - Neuralgia [None]
  - Burning sensation [None]
  - Muscular weakness [None]
  - Asthenia [None]
  - Tendon disorder [None]
  - Pain in extremity [None]

NARRATIVE: CASE EVENT DATE: 20150114
